FAERS Safety Report 13472911 (Version 1)
Quarter: 2017Q2

REPORT INFORMATION
  Report Type: Spontaneous
  Country: AU (occurrence: AU)
  Receive Date: 20170424
  Receipt Date: 20170424
  Transmission Date: 20170830
  Serious: Yes (Other)
  Sender: FDA-Public Use
  Company Number: PHHY2017AU059773

PATIENT

DRUGS (1)
  1. ENTRESTO [Suspect]
     Active Substance: SACUBITRIL\VALSARTAN
     Indication: PRODUCT USED FOR UNKNOWN INDICATION
     Dosage: 100 MG, UNK
     Route: 065

REACTIONS (9)
  - Angina pectoris [Unknown]
  - Malaise [Unknown]
  - Lethargy [Unknown]
  - Asthenia [Unknown]
  - Libido decreased [Unknown]
  - Dyspnoea [Unknown]
  - Presyncope [Unknown]
  - Decreased appetite [Unknown]
  - Weight decreased [Unknown]
